FAERS Safety Report 21546056 (Version 1)
Quarter: 2022Q4

REPORT INFORMATION
  Report Type: Report from Study
  Country: US (occurrence: US)
  Receive Date: 20221103
  Receipt Date: 20221103
  Transmission Date: 20230113
  Serious: Yes (Hospitalization)
  Sender: FDA-Public Use
  Company Number: US-SERVIER-S22011051

PATIENT

DRUGS (8)
  1. PEGASPARGASE [Suspect]
     Active Substance: PEGASPARGASE
     Indication: B precursor type acute leukaemia
     Dosage: 3750 IU (2000 IU/M2), D4, D43
     Route: 042
     Dates: start: 20220805, end: 20220913
  2. DEXAMETHASONE [Suspect]
     Active Substance: DEXAMETHASONE
     Indication: B precursor type acute leukaemia
     Dosage: 5 MG, BID, D1-7 AND 15-21
     Route: 065
     Dates: start: 20220802, end: 20220830
  3. METHOTREXATE [Suspect]
     Active Substance: METHOTREXATE
     Indication: B precursor type acute leukaemia
     Dosage: 15 MG, D1, 29, 36
     Route: 037
     Dates: start: 20220802, end: 20220913
  4. VINCRISTINE [Suspect]
     Active Substance: VINCRISTINE
     Indication: B precursor type acute leukaemia
     Dosage: 1.5 MG/M2, MAXIMUM 2 MG, D1, 8, 15, 43, 50
     Route: 042
     Dates: start: 20220802, end: 20220913
  5. DOXORUBICIN [Suspect]
     Active Substance: DOXORUBICIN
     Indication: B precursor type acute leukaemia
     Dosage: 25 MG/M2, D1, 8, 15
     Route: 042
     Dates: start: 20220802, end: 20220815
  6. RITUXIMAB [Suspect]
     Active Substance: RITUXIMAB
     Indication: B precursor type acute leukaemia
     Dosage: 375 MG/M2, D1, 8
     Route: 042
     Dates: start: 20220802, end: 20220809
  7. CYTARABINE [Suspect]
     Active Substance: CYTARABINE
     Indication: B precursor type acute leukaemia
     Dosage: 75 MG/M2, D29-32 AND 36-39
     Route: 065
     Dates: start: 20220830, end: 20220909
  8. CYCLOPHOSPHAMIDE [Suspect]
     Active Substance: CYCLOPHOSPHAMIDE
     Indication: B precursor type acute leukaemia
     Dosage: 1000 MG/M2, D29
     Route: 042
     Dates: start: 20220830, end: 20220830

REACTIONS (1)
  - Posterior reversible encephalopathy syndrome [Not Recovered/Not Resolved]

NARRATIVE: CASE EVENT DATE: 20220925
